FAERS Safety Report 6113225-4 (Version None)
Quarter: 2009Q1

REPORT INFORMATION
  Report Type: 
  Country: None (occurrence: None)
  Receive Date: 20090312
  Receipt Date: 20090303
  Transmission Date: 20090719
  Serious: Yes (Life-Threatening)
  Sender: FDA-Public Use
  Company Number: PH-BAXTER-2009BH002947

PATIENT

DRUGS (1)
  1. FORANE [Suspect]
     Indication: GENERAL ANAESTHESIA
     Route: 055

REACTIONS (2)
  - DRUG INEFFECTIVE [None]
  - POOR QUALITY DRUG ADMINISTERED [None]
